FAERS Safety Report 18543175 (Version 1)
Quarter: 2020Q4

REPORT INFORMATION
  Report Type: Spontaneous
  Country: CH (occurrence: CH)
  Receive Date: 20201124
  Receipt Date: 20201124
  Transmission Date: 20210114
  Serious: Yes (Hospitalization)
  Sender: FDA-Public Use
  Company Number: CH-PURDUE-USA-2020-0179045

PATIENT
  Age: 70 Year
  Sex: Male

DRUGS (2)
  1. PALLADONE [Suspect]
     Active Substance: HYDROMORPHONE HYDROCHLORIDE
     Indication: PHANTOM LIMB SYNDROME
     Dosage: UNK (LAST TAKEN DOSE WAS 3.9MG ON 23OCT AT MIDNIGHT)
     Route: 065
  2. LYRICA [Suspect]
     Active Substance: PREGABALIN
     Indication: PHANTOM LIMB SYNDROME
     Dosage: UNK (LAST TAKEN DOSE THOUGHT TO BE 200 MG AT MIDNIGHT)
     Route: 065

REACTIONS (3)
  - Depressed level of consciousness [Unknown]
  - Disturbance in attention [Unknown]
  - Somnolence [Unknown]

NARRATIVE: CASE EVENT DATE: 20201024
